FAERS Safety Report 25157188 (Version 4)
Quarter: 2025Q3

REPORT INFORMATION
  Report Type: Report from Study
  Country: CA (occurrence: CA)
  Receive Date: 20250403
  Receipt Date: 20250810
  Transmission Date: 20251021
  Serious: Yes (Other)
  Sender: ALEXION PHARMACEUTICALS
  Company Number: CA-AstraZeneca-CH-00834367A

PATIENT
  Age: 61 Year
  Sex: Female

DRUGS (14)
  1. ULTOMIRIS [Suspect]
     Active Substance: RAVULIZUMAB-CWVZ
     Indication: Paroxysmal nocturnal haemoglobinuria
  2. ULTOMIRIS [Suspect]
     Active Substance: RAVULIZUMAB-CWVZ
  3. ULTOMIRIS [Suspect]
     Active Substance: RAVULIZUMAB-CWVZ
     Dosage: 3000 MILLIGRAM, Q8W
     Dates: start: 20240919
  4. SOLIRIS [Suspect]
     Active Substance: ECULIZUMAB
     Indication: Paroxysmal nocturnal haemoglobinuria
     Route: 065
  5. FRAGMIN [Suspect]
     Active Substance: DALTEPARIN SODIUM
     Route: 065
  6. LITHIUM [Concomitant]
     Active Substance: LITHIUM
     Dosage: 300 MILLIGRAM, QHS
  7. OLANZAPINE [Concomitant]
     Active Substance: OLANZAPINE
     Dosage: 10 MILLIGRAM, QHS
  8. CLOMIPRAMINE [Concomitant]
     Active Substance: CLOMIPRAMINE
     Dosage: 125 MILLIGRAM, QHS
  9. ZOPICLONE [Concomitant]
     Active Substance: ZOPICLONE
     Dosage: 7.5 MILLIGRAM, QHS
  10. CLONAZEPAM [Concomitant]
     Active Substance: CLONAZEPAM
     Dosage: 1 MILLIGRAM, BID
  11. PANTOPRAZOLE [Concomitant]
     Active Substance: PANTOPRAZOLE
     Dosage: 40 MILLIGRAM, QD
  12. ATORVASTATIN [Concomitant]
     Active Substance: ATORVASTATIN
     Dosage: 20 MILLIGRAM, QD
  13. DALTEPARIN [Concomitant]
     Active Substance: DALTEPARIN
     Dosage: 12500 UNITS, QHS
     Route: 065
  14. APIXABAN [Concomitant]
     Active Substance: APIXABAN
     Route: 065

REACTIONS (17)
  - Haemolysis [Unknown]
  - Cerebral thrombosis [Unknown]
  - Intravascular haemolysis [Unknown]
  - Abdominal wall haematoma [Recovered/Resolved]
  - Schizoaffective disorder [Unknown]
  - Mental disorder [Not Recovered/Not Resolved]
  - Blood lactate dehydrogenase increased [Unknown]
  - Red cell distribution width increased [Unknown]
  - Lymphocyte count decreased [Unknown]
  - Drug intolerance [Unknown]
  - Migraine [Unknown]
  - Haemoglobin increased [Unknown]
  - Mean cell haemoglobin concentration decreased [Unknown]
  - Haemorrhage [Unknown]
  - Obsessive-compulsive disorder [Unknown]
  - Blood cholesterol increased [Unknown]
  - Gastrooesophageal reflux disease [Unknown]

NARRATIVE: CASE EVENT DATE: 20250313
